FAERS Safety Report 7145287-X (Version None)
Quarter: 2010Q4

REPORT INFORMATION
  Report Type: 
  Country: None (occurrence: None)
  Receive Date: 20101208
  Receipt Date: 20101126
  Transmission Date: 20110411
  Serious: Yes (Other)
  Sender: FDA-Public Use
  Company Number: DE-NOVOPROD-289492

PATIENT
  Sex: Female
  Weight: 30 kg

DRUGS (5)
  1. NORDITROPIN [Suspect]
     Indication: PRODUCT USED FOR UNKNOWN INDICATION
     Dosage: 1.4 MG, QD
     Route: 058
     Dates: start: 20011012, end: 20090112
  2. HYDROCORTISON                      /00028601/ [Concomitant]
     Dosage: UNK
  3. LEVOTHYROXINE SODIUM [Concomitant]
     Dosage: UNK
     Route: 048
  4. MINIRIN                            /00361901/ [Concomitant]
  5. ASTONIN H [Concomitant]
     Dosage: UNK

REACTIONS (1)
  - MENINGEAL DISORDER [None]
